FAERS Safety Report 9278572 (Version 1)
Quarter: 2013Q2

REPORT INFORMATION
  Report Type: Spontaneous
  Country: US (occurrence: None)
  Receive Date: 20130506
  Receipt Date: 20130506
  Transmission Date: 20140414
  Serious: Yes (Hospitalization)
  Sender: FDA-Public Use
  Company Number: None

PATIENT
  Age: 56 Year
  Sex: Female
  Weight: 70.4 kg

DRUGS (1)
  1. ISENTRESS (RALTEGRAVIR) [Suspect]
     Indication: ACQUIRED IMMUNODEFICIENCY SYNDROME
     Route: 048
     Dates: start: 20130205, end: 20130502

REACTIONS (17)
  - Rash maculo-papular [None]
  - Eosinophilia [None]
  - Drug reaction with eosinophilia and systemic symptoms [None]
  - Pyrexia [None]
  - Chills [None]
  - Stomatitis [None]
  - Nausea [None]
  - Vomiting [None]
  - Diarrhoea [None]
  - Skin exfoliation [None]
  - Dry mouth [None]
  - Oral candidiasis [None]
  - Skin lesion [None]
  - Erythema [None]
  - Pruritus [None]
  - Pain [None]
  - Heart rate increased [None]
